FAERS Safety Report 6832719-7 (Version None)
Quarter: 2010Q3

REPORT INFORMATION
  Report Type: 
  Country: None (occurrence: None)
  Receive Date: 20100712
  Receipt Date: 20100706
  Transmission Date: 20110219
  Serious: Yes (Other)
  Sender: FDA-Public Use
  Company Number: HQWYE303521JUL04

PATIENT
  Sex: Female

DRUGS (1)
  1. PREMPRO [Suspect]
     Indication: HORMONE REPLACEMENT THERAPY

REACTIONS (8)
  - ASTHMA [None]
  - BREAST CANCER [None]
  - CARDIAC DISORDER [None]
  - GALLBLADDER DISORDER [None]
  - MIGRAINE [None]
  - MYOCARDIAL INFARCTION [None]
  - SYNCOPE [None]
  - WEIGHT INCREASED [None]
